FAERS Safety Report 6974494-1 (Version None)
Quarter: 2010Q3

REPORT INFORMATION
  Report Type: 
  Country: None (occurrence: None)
  Receive Date: 20100909
  Receipt Date: 20100903
  Transmission Date: 20110219
  Serious: Yes (Other)
  Sender: FDA-Public Use
  Company Number: TR-MERCK-1009TUR00001

PATIENT
  Sex: Female

DRUGS (1)
  1. INVANZ [Suspect]
     Route: 065
     Dates: start: 20090101

REACTIONS (2)
  - ABORTION [None]
  - DRUG EXPOSURE DURING PREGNANCY [None]
